FAERS Safety Report 6441032-1 (Version None)
Quarter: 2009Q4

REPORT INFORMATION
  Report Type: 
  Country: None (occurrence: None)
  Receive Date: 20091116
  Receipt Date: 20091103
  Transmission Date: 20100525
  Serious: Yes (Other)
  Sender: FDA-Public Use
  Company Number: US-ROCHE-667014

PATIENT
  Age: 62 Year
  Sex: Female

DRUGS (2)
  1. TAMIFLU [Suspect]
     Route: 048
     Dates: start: 20091002, end: 20091010
  2. TAMIFLU [Suspect]
     Route: 048
     Dates: start: 20091010, end: 20091014

REACTIONS (1)
  - ACUTE RESPIRATORY DISTRESS SYNDROME [None]
